FAERS Safety Report 4455409-7 (Version None)
Quarter: 2004Q3

REPORT INFORMATION
  Report Type: 
  Country: None (occurrence: None)
  Receive Date: 20040830
  Receipt Date: 20040607
  Transmission Date: 20050211
  Serious: No
  Sender: FDA-Public Use
  Company Number: 205272

PATIENT
  Age: 12 Year
  Sex: Male
  Weight: 61.2 kg

DRUGS (4)
  1. XOLAIR [Suspect]
     Indication: ASTHMA
     Dosage: 300 MG,Q2W,SUBCUTANEOUS
     Route: 058
     Dates: start: 20031124
  2. NASONEX [Concomitant]
  3. SINGULAIR [Concomitant]
  4. CLARITIN [Concomitant]

REACTIONS (1)
  - HEADACHE [None]
